FAERS Safety Report 24674989 (Version 1)
Quarter: 2024Q4

REPORT INFORMATION
  Report Type: Spontaneous
  Country: GB (occurrence: GB)
  Receive Date: 20241128
  Receipt Date: 20241128
  Transmission Date: 20250115
  Serious: Yes (Other)
  Sender: CHEPLAPHARM
  Company Number: None

PATIENT
  Age: 49 Year

DRUGS (7)
  1. OLANZAPINE [Suspect]
     Active Substance: OLANZAPINE
  2. MIRTAZAPINE [Suspect]
     Active Substance: MIRTAZAPINE
     Dates: start: 20241116
  3. THIAMINE [Concomitant]
     Active Substance: THIAMINE
  4. OXAZEPAM [Concomitant]
     Active Substance: OXAZEPAM
  5. PREGABALIN [Concomitant]
     Active Substance: PREGABALIN
  6. ACAMPROSATE [Concomitant]
     Active Substance: ACAMPROSATE
  7. CODEINE [Concomitant]
     Active Substance: CODEINE

REACTIONS (1)
  - Electrocardiogram QT prolonged [Recovered/Resolved with Sequelae]
